FAERS Safety Report 10659263 (Version 1)
Quarter: 2014Q4

REPORT INFORMATION
  Report Type: Spontaneous
  Country: US (occurrence: US)
  Receive Date: 20141217
  Receipt Date: 20141217
  Transmission Date: 20150529
  Serious: Yes (Hospitalization, Other)
  Sender: FDA-Public Use
  Company Number: US-SHIRE-US201408797

PATIENT
  Age: 62 Year
  Sex: Male
  Weight: 67.57 kg

DRUGS (2)
  1. PENTASA [Suspect]
     Active Substance: MESALAMINE
     Dosage: 500 MG, 3X/DAY:TID
     Route: 048
     Dates: start: 2013
  2. PENTASA [Suspect]
     Active Substance: MESALAMINE
     Indication: CROHN^S DISEASE
     Dosage: 500 MG, 4X/DAY:QID
     Route: 048
     Dates: start: 2012, end: 2013

REACTIONS (10)
  - Hospitalisation [Unknown]
  - Throat cancer [Not Recovered/Not Resolved]
  - Fatigue [Recovered/Resolved]
  - Visual acuity reduced [Not Recovered/Not Resolved]
  - Gastrointestinal disorder [Not Recovered/Not Resolved]
  - Tongue neoplasm malignant stage unspecified [Not Recovered/Not Resolved]
  - Product use issue [Not Recovered/Not Resolved]
  - Product quality issue [Unknown]
  - Urticaria [Recovered/Resolved]
  - Drug effect increased [Recovered/Resolved]

NARRATIVE: CASE EVENT DATE: 2012
